FAERS Safety Report 6761347-7 (Version None)
Quarter: 2010Q2

REPORT INFORMATION
  Report Type: 
  Country: None (occurrence: None)
  Receive Date: 20100608
  Receipt Date: 20100607
  Transmission Date: 20101027
  Serious: Yes (Hospitalization, Disabling, Other)
  Sender: FDA-Public Use
  Company Number: US-MERCK-1001USA03803

PATIENT
  Sex: Female

DRUGS (4)
  1. FOSAMAX [Suspect]
     Indication: OSTEOPOROSIS
     Route: 048
     Dates: start: 19950101
  2. FOSAMAX [Suspect]
     Route: 048
     Dates: end: 20070101
  3. FOSAMAX PLUS D [Concomitant]
     Indication: OSTEOPOROSIS
     Route: 048
     Dates: end: 20070101
  4. BONIVA [Concomitant]
     Indication: OSTEOPOROSIS
     Route: 065
     Dates: start: 20070101

REACTIONS (14)
  - BLOOD CHOLESTEROL INCREASED [None]
  - DENTAL CARIES [None]
  - EDENTULOUS [None]
  - EXOSTOSIS [None]
  - GINGIVAL DISORDER [None]
  - HERNIA [None]
  - IMPAIRED HEALING [None]
  - ORAL CAVITY FISTULA [None]
  - ORAL HERPES [None]
  - OSTEONECROSIS OF JAW [None]
  - PERIODONTAL DISEASE [None]
  - ROTATOR CUFF SYNDROME [None]
  - STOMATITIS [None]
  - TOOTH DISORDER [None]
